FAERS Safety Report 9238358 (Version 1)
Quarter: 2013Q1

REPORT INFORMATION
  Report Type: Spontaneous
  Country: US (occurrence: None)
  Receive Date: 20121106
  Receipt Date: 20121106
  Transmission Date: 20140127
  Serious: No
  Sender: FDA-Public Use
  Company Number: 1000037462

PATIENT
  Age: 68 Year
  Sex: Female

DRUGS (7)
  1. DALIRESP [Suspect]
     Indication: CHRONIC OBSTRUCTIVE PULMONARY DISEASE
     Dosage: 500 MCG (500 MCG, 1 IN 1D), ORAL
     Dates: start: 20120710, end: 20120713
  2. DILTIAZEM (DILTIAZEM HYDROCHLORIDE) [Concomitant]
  3. SEROQUEL (QUETIAPINE FUMARATE) [Concomitant]
  4. SPIRIVA (TIOTROPIUM BROMIDE) [Concomitant]
  5. BROVANA (ARFORMOTEROL TARTRATE) [Concomitant]
  6. BUDESODIUDE (BUDESONIDE) [Concomitant]
  7. ALBUTEROL (ALBUTEROL) [Concomitant]

REACTIONS (5)
  - Diarrhoea [None]
  - Faeces discoloured [None]
  - Flank pain [None]
  - Depression [None]
  - Insomnia [None]
